FAERS Safety Report 21285913 (Version 1)
Quarter: 2022Q3

REPORT INFORMATION
  Report Type: Spontaneous
  Country: FR (occurrence: FR)
  Receive Date: 20220902
  Receipt Date: 20220902
  Transmission Date: 20221026
  Serious: Yes (Life-Threatening)
  Sender: FDA-Public Use
  Company Number: None

PATIENT
  Age: 1 Year
  Sex: Male
  Weight: 15 kg

DRUGS (1)
  1. BETAMETHASONE [Suspect]
     Active Substance: BETAMETHASONE
     Indication: Laryngitis
     Dosage: 270 GTT DROPS(1/12 MILLILITER);ORAL SOLUTION IN DROPS
     Route: 048
     Dates: start: 20190111, end: 20190111

REACTIONS (1)
  - Purpura fulminans [Recovered/Resolved with Sequelae]

NARRATIVE: CASE EVENT DATE: 20190111
